FAERS Safety Report 22217986 (Version 3)
Quarter: 2024Q1

REPORT INFORMATION
  Report Type: Spontaneous
  Country: FR (occurrence: FR)
  Receive Date: 20230417
  Receipt Date: 20240201
  Transmission Date: 20240410
  Serious: Yes (Other)
  Sender: FDA-Public Use
  Company Number: FR-CELLTRION INC.-2023FR007581

PATIENT

DRUGS (7)
  1. RITUXIMAB [Suspect]
     Active Substance: RITUXIMAB
     Indication: Follicular lymphoma
     Dosage: R-GEMOX REGIMEN
  2. RITUXIMAB [Suspect]
     Active Substance: RITUXIMAB
     Dosage: UNK
  3. OXALIPLATIN [Suspect]
     Active Substance: OXALIPLATIN
     Indication: Follicular lymphoma
     Dosage: UNK
  4. OXALIPLATIN [Suspect]
     Active Substance: OXALIPLATIN
     Dosage: R-GEMOX REGIMEN
  5. LISOCABTAGENE MARALEUCEL [Suspect]
     Active Substance: LISOCABTAGENE MARALEUCEL
     Indication: Follicular lymphoma
     Dosage: UNK
  6. GEMCITABINE [Suspect]
     Active Substance: GEMCITABINE
     Indication: Follicular lymphoma
     Dosage: R-GEMOX REGIMEN
  7. GEMCITABINE [Suspect]
     Active Substance: GEMCITABINE
     Dosage: UNK

REACTIONS (4)
  - Diffuse large B-cell lymphoma [Unknown]
  - Tumour pseudoprogression [Unknown]
  - Cytokine release syndrome [Unknown]
  - Drug ineffective [Unknown]
